FAERS Safety Report 24708480 (Version 1)
Quarter: 2024Q4

REPORT INFORMATION
  Report Type: Spontaneous
  Country: US (occurrence: US)
  Receive Date: 20241207
  Receipt Date: 20241207
  Transmission Date: 20250115
  Serious: Yes (Life-Threatening, Hospitalization, Disabling, Other)
  Sender: AUROBINDO
  Company Number: US-MLMSERVICE-20241115-PI257789-00130-1

PATIENT
  Age: 26 Year
  Sex: Female

DRUGS (3)
  1. TENOFOVIR DISOPROXIL FUMARATE [Suspect]
     Active Substance: TENOFOVIR DISOPROXIL FUMARATE
     Indication: HIV infection
     Dosage: UNK
     Route: 065
  2. LAMIVUDINE [Suspect]
     Active Substance: LAMIVUDINE
     Indication: HIV infection
     Dosage: UNK
     Route: 065
  3. DOLUTEGRAVIR [Suspect]
     Active Substance: DOLUTEGRAVIR
     Indication: HIV infection
     Dosage: UNK
     Route: 065

REACTIONS (7)
  - Blindness [Recovering/Resolving]
  - Papilloedema [Recovering/Resolving]
  - Meningitis cryptococcal [Recovering/Resolving]
  - Hemiparesis [Recovering/Resolving]
  - Retinal haemorrhage [Recovering/Resolving]
  - Unmasking of previously unidentified disease [Recovering/Resolving]
  - Condition aggravated [Recovering/Resolving]
